FAERS Safety Report 16546046 (Version 2)
Quarter: 2021Q3

REPORT INFORMATION
  Report Type: Spontaneous
  Country: US (occurrence: US)
  Receive Date: 20190709
  Receipt Date: 20210709
  Transmission Date: 20211014
  Serious: No
  Sender: FDA-Public Use
  Company Number: US-ASTELLAS-2018US030092

PATIENT
  Age: 77 Year
  Sex: Female

DRUGS (2)
  1. MYRBETRIQ [Suspect]
     Active Substance: MIRABEGRON
     Route: 065
     Dates: start: 2017
  2. MYRBETRIQ [Suspect]
     Active Substance: MIRABEGRON
     Indication: PRODUCT USED FOR UNKNOWN INDICATION
     Route: 065

REACTIONS (7)
  - Muscle spasms [Unknown]
  - Micturition urgency [Unknown]
  - Drug ineffective [Unknown]
  - Treatment noncompliance [Unknown]
  - Urinary incontinence [Unknown]
  - Urge incontinence [Unknown]
  - Pollakiuria [Unknown]

NARRATIVE: CASE EVENT DATE: 20180701
